FAERS Safety Report 5233299-2 (Version None)
Quarter: 2007Q1

REPORT INFORMATION
  Report Type: 
  Country: None (occurrence: None)
  Receive Date: 20070206
  Receipt Date: 20070123
  Transmission Date: 20070707
  Serious: Yes (Hospitalization)
  Sender: FDA-Public Use
  Company Number: 2007SP000365

PATIENT
  Age: 67 Year
  Sex: Female

DRUGS (1)
  1. XOPENEX [Suspect]
     Indication: PNEUMONIA
     Dosage: 1X; INHALATION
     Route: 055
     Dates: start: 20061128, end: 20061128

REACTIONS (9)
  - ASTHMA [None]
  - BLOOD GLUCOSE INCREASED [None]
  - CARDIAC FAILURE CONGESTIVE [None]
  - CHRONIC OBSTRUCTIVE PULMONARY DISEASE [None]
  - CONDITION AGGRAVATED [None]
  - PNEUMONIA [None]
  - PULMONARY ARTERIAL PRESSURE INCREASED [None]
  - TREMOR [None]
  - TRICUSPID VALVE INCOMPETENCE [None]
